FAERS Safety Report 9187910 (Version 2)
Quarter: 2013Q2

REPORT INFORMATION
  Report Type: Spontaneous
  Country: US (occurrence: US)
  Receive Date: 20130325
  Receipt Date: 20130510
  Transmission Date: 20140414
  Serious: Yes (Other)
  Sender: FDA-Public Use
  Company Number: CHPA2013US004940

PATIENT
  Age: 63 Year
  Sex: Female

DRUGS (6)
  1. PERDIEM OVERNIGHT RELIEF PILLS [Suspect]
     Indication: CONSTIPATION
     Dosage: 2 DF, QD
     Route: 048
  2. PERDIEM OVERNIGHT RELIEF PILLS [Suspect]
     Indication: CONSTIPATION
     Dosage: 0.5 TO 1 TSP, QD
     Route: 048
  3. PERDIEM OVERNIGHT RELIEF PILLS [Suspect]
     Dosage: 0.5 TO 1UNK TSP, PRN
     Route: 048
  4. FIORICET [Concomitant]
     Dosage: UNK, UP TO TWICE WEEKLY
     Route: 048
     Dates: start: 1988
  5. ATIVAN [Concomitant]
     Indication: MIGRAINE
     Dosage: 5 MG, QD
     Route: 048
     Dates: start: 20130312
  6. PHENERGAN ^MAY + BAKER^ [Concomitant]
     Indication: MIGRAINE
     Dosage: 25 MG, 3 TO 4 TIMES MONTHLY
     Dates: start: 2008

REACTIONS (4)
  - Spinal osteoarthritis [Not Recovered/Not Resolved]
  - Osteoarthritis [Not Recovered/Not Resolved]
  - Gastrooesophageal reflux disease [Not Recovered/Not Resolved]
  - Product physical issue [None]
